FAERS Safety Report 22037764 (Version 1)
Quarter: 2023Q1

REPORT INFORMATION
  Report Type: Spontaneous
  Country: US (occurrence: US)
  Receive Date: 20230227
  Receipt Date: 20230227
  Transmission Date: 20230417
  Serious: No
  Sender: FDA-Public Use
  Company Number: US-BRISTOL-MYERS SQUIBB COMPANY-2023-028423

PATIENT
  Age: 81 Year
  Sex: Female

DRUGS (1)
  1. ONUREG [Suspect]
     Active Substance: AZACITIDINE
     Indication: Product used for unknown indication
     Dosage: FREQ : TAKE 1 TABLET BY MOUTH ONCE DAILY FOR 14 DAYS WITH EACH COURSE OF CHEMOTHERAPY
     Route: 048

REACTIONS (1)
  - Adverse event [Unknown]
